FAERS Safety Report 5341429-7 (Version None)
Quarter: 2007Q2

REPORT INFORMATION
  Report Type: 
  Country: None (occurrence: None)
  Receive Date: 20070530
  Receipt Date: 20070516
  Transmission Date: 20071010
  Serious: Yes (Hospitalization)
  Sender: FDA-Public Use
  Company Number: GXKR2007BR04421

PATIENT
  Age: 71 Year
  Sex: Female

DRUGS (10)
  1. ATENOLOL [Suspect]
     Indication: HYPERTENSION
     Dosage: 100 MG, QD, ORAL
     Route: 048
  2. DIOVAN [Concomitant]
  3. DIAMICRON (GLICLAZIDE) [Concomitant]
  4. CLONIDINE HCL [Concomitant]
  5. METFORMIN HCL [Concomitant]
  6. ACETYLSALICYLIC ACID SRT [Concomitant]
  7. DAFLON (DIOSMIN) [Concomitant]
  8. OMEPRAZOLE [Concomitant]
  9. HYDERGINE (DIHYDROERGOCORNINE MESILATE, DIHYDROERGOCRISTINE MESILATE, [Concomitant]
  10. LISINOPRIL [Concomitant]

REACTIONS (2)
  - CEREBROVASCULAR ACCIDENT [None]
  - HYPERTENSION [None]
